FAERS Safety Report 23736545 (Version 1)
Quarter: 2024Q2

REPORT INFORMATION
  Report Type: Spontaneous
  Country: NL (occurrence: NL)
  Receive Date: 20240412
  Receipt Date: 20240412
  Transmission Date: 20240716
  Serious: Yes (Other)
  Sender: FDA-Public Use
  Company Number: NL-SA-2024SA110391

PATIENT
  Sex: Male

DRUGS (4)
  1. ANTI-THYMOCYTE GLOBULIN (RABBIT) NOS [Suspect]
     Active Substance: LAPINE T-LYMPHOCYTE IMMUNE GLOBULIN
     Indication: Prophylaxis against graft versus host disease
  2. FLUDARABINE PHOSPHATE [Suspect]
     Active Substance: FLUDARABINE PHOSPHATE
     Indication: Chemotherapy
  3. RITUXIMAB [Suspect]
     Active Substance: RITUXIMAB
     Indication: Prophylaxis against graft versus host disease
  4. TREOSULFAN [Suspect]
     Active Substance: TREOSULFAN
     Indication: Chemotherapy

REACTIONS (5)
  - Encephalopathy [Recovering/Resolving]
  - Encephalitis [Recovering/Resolving]
  - Neurotoxicity [Recovering/Resolving]
  - Neurological decompensation [Recovering/Resolving]
  - Off label use [Unknown]
